FAERS Safety Report 19752157 (Version 2)
Quarter: 2021Q3

REPORT INFORMATION
  Report Type: Report from Study
  Country: US (occurrence: US)
  Receive Date: 20210826
  Receipt Date: 20210907
  Transmission Date: 20211014
  Serious: Yes (Other)
  Sender: FDA-Public Use
  Company Number: US-TEVA-2021-US-1944822

PATIENT
  Age: 16 Year
  Sex: Female
  Weight: 91.3 kg

DRUGS (2)
  1. RISPERIDONE. [Suspect]
     Active Substance: RISPERIDONE
     Indication: DELIRIUM
     Dosage: .5 MILLIGRAM DAILY; FOR 8 DAYS
     Route: 065
  2. METHADONE [Interacting]
     Active Substance: METHADONE HYDROCHLORIDE
     Indication: DELIRIUM
     Dosage: 20 MILLIGRAM DAILY;
     Route: 065

REACTIONS (2)
  - Electrocardiogram QT prolonged [Unknown]
  - Drug interaction [Unknown]
